FAERS Safety Report 4732662-3 (Version None)
Quarter: 2005Q3

REPORT INFORMATION
  Report Type: 
  Country: None (occurrence: None)
  Receive Date: 20050803
  Receipt Date: 20050727
  Transmission Date: 20060218
  Serious: Yes (Death, Other)
  Sender: FDA-Public Use
  Company Number: PHBS2005US10956

PATIENT
  Sex: Male

DRUGS (9)
  1. NIFEDIPINE [Suspect]
     Route: 064
  2. LABETALOL [Concomitant]
     Route: 064
  3. CALCIUM GLUCONATE [Concomitant]
  4. MULTI-VITAMINS [Concomitant]
     Route: 064
  5. FOLIC ACID [Concomitant]
     Route: 064
  6. HYDRALAZINE [Suspect]
     Route: 064
  7. EPOGEN [Concomitant]
     Route: 064
  8. IRON [Concomitant]
     Route: 064
  9. CALCITRIOL [Concomitant]
     Route: 064

REACTIONS (5)
  - APGAR SCORE LOW [None]
  - DRUG EXPOSURE DURING PREGNANCY [None]
  - FOETAL GROWTH RETARDATION [None]
  - FOETAL HEART RATE ABNORMAL [None]
  - MECONIUM STAIN [None]
